FAERS Safety Report 14236038 (Version 1)
Quarter: 2017Q4

REPORT INFORMATION
  Report Type: Report from Study
  Country: None (occurrence: US)
  Receive Date: 20171129
  Receipt Date: 20171129
  Transmission Date: 20180321
  Serious: Yes (Other)
  Sender: FDA-Public Use
  Company Number: US-ABBVIE-17K-163-2015708-00

PATIENT
  Age: 69 Year
  Sex: Female

DRUGS (1)
  1. HUMIRA [Suspect]
     Active Substance: ADALIMUMAB
     Indication: RHEUMATOID ARTHRITIS
     Route: 058

REACTIONS (17)
  - Neck injury [Recovering/Resolving]
  - Pain [Recovered/Resolved]
  - Arthropod infestation [Unknown]
  - Acquired diaphragmatic eventration [Not Recovered/Not Resolved]
  - Stress [Not Recovered/Not Resolved]
  - Road traffic accident [Recovering/Resolving]
  - Drug hypersensitivity [Recovered/Resolved]
  - Dyspnoea [Not Recovered/Not Resolved]
  - Skin fissures [Not Recovered/Not Resolved]
  - Mental disorder [Unknown]
  - Joint stiffness [Not Recovered/Not Resolved]
  - Chemical poisoning [Not Recovered/Not Resolved]
  - Decreased appetite [Not Recovered/Not Resolved]
  - Discomfort [Not Recovered/Not Resolved]
  - Joint swelling [Not Recovered/Not Resolved]
  - Limb injury [Recovering/Resolving]
  - Allergic oedema [Recovered/Resolved]

NARRATIVE: CASE EVENT DATE: 201610
